FAERS Safety Report 13354221 (Version 1)
Quarter: 2017Q1

REPORT INFORMATION
  Report Type: Spontaneous
  Country: FR (occurrence: FR)
  Receive Date: 20170321
  Receipt Date: 20170321
  Transmission Date: 20170429
  Serious: Yes (Other)
  Sender: FDA-Public Use
  Company Number: FR-009507513-1703FRA008492

PATIENT
  Age: 86 Year
  Sex: Male

DRUGS (2)
  1. JANUVIA [Suspect]
     Active Substance: SITAGLIPTIN PHOSPHATE
     Dosage: 2 TABLETS (50 MG) / A DAY
     Route: 048
     Dates: start: 201610, end: 201612
  2. METFORMIN [Concomitant]
     Active Substance: METFORMIN HYDROCHLORIDE
     Dosage: 2 TABLETS (500 MG)/ A DAY

REACTIONS (4)
  - Jaundice [Unknown]
  - Pancreatic carcinoma [Unknown]
  - Circumstance or information capable of leading to medication error [Unknown]
  - Drug prescribing error [Unknown]

NARRATIVE: CASE EVENT DATE: 201610
